FAERS Safety Report 7242690-4 (Version None)
Quarter: 2011Q1

REPORT INFORMATION
  Report Type: 
  Country: None (occurrence: None)
  Receive Date: 20110125
  Receipt Date: 20110114
  Transmission Date: 20110831
  Serious: Yes (Death)
  Sender: FDA-Public Use
  Company Number: TW-BAXTER-2011BH001343

PATIENT
  Sex: Male

DRUGS (6)
  1. DIANEAL [Suspect]
     Indication: PERITONEAL DIALYSIS
     Route: 033
     Dates: start: 20051201
  2. NUTRINEAL [Suspect]
     Route: 033
     Dates: start: 20051201
  3. DIANEAL [Suspect]
     Route: 033
     Dates: start: 20051201
  4. NUTRINEAL [Suspect]
     Indication: PERITONEAL DIALYSIS
     Route: 033
     Dates: start: 20051201
  5. DIANEAL [Suspect]
     Indication: PERITONEAL DIALYSIS
     Route: 033
     Dates: start: 20051201
  6. DIANEAL [Suspect]
     Route: 033
     Dates: start: 20051201

REACTIONS (1)
  - DEATH [None]
